FAERS Safety Report 16119514 (Version 1)
Quarter: 2019Q1

REPORT INFORMATION
  Report Type: Spontaneous
  Country: PL (occurrence: PL)
  Receive Date: 20190326
  Receipt Date: 20190326
  Transmission Date: 20190418
  Serious: Yes (Other)
  Sender: FDA-Public Use
  Company Number: PL-BAYER-2019-053281

PATIENT
  Age: 67 Year
  Sex: Female

DRUGS (8)
  1. ZOLPIDEM [Suspect]
     Active Substance: ZOLPIDEM\ZOLPIDEM TARTRATE
  2. TICAGRELOR. [Suspect]
     Active Substance: TICAGRELOR
     Dosage: UNK
  3. HYDROXYZINE [Suspect]
     Active Substance: HYDROXYZINE HYDROCHLORIDE
  4. ACETYLSALICYLIC ACID (CARDIO) [Suspect]
     Active Substance: ASPIRIN
     Dosage: UNK
  5. PERAZINE [Suspect]
     Active Substance: PERAZINE
  6. MELATONIN [Suspect]
     Active Substance: MELATONIN
  7. ZOFENOPRIL [Concomitant]
     Active Substance: ZOFENOPRIL
  8. EPLERENONE. [Concomitant]
     Active Substance: EPLERENONE

REACTIONS (6)
  - Sleep disorder [None]
  - Angina pectoris [None]
  - Memory impairment [None]
  - Hypoaesthesia [None]
  - Disturbance in attention [None]
  - Vascular stent thrombosis [None]
